FAERS Safety Report 5152989-3 (Version None)
Quarter: 2006Q4

REPORT INFORMATION
  Report Type: 
  Country: None (occurrence: None)
  Receive Date: 20061117
  Receipt Date: 20061106
  Transmission Date: 20070319
  Serious: Yes (Death, Life-Threatening)
  Sender: FDA-Public Use
  Company Number: IT-JNJFOC-20061101309

PATIENT
  Sex: Female

DRUGS (9)
  1. REMICADE [Suspect]
     Indication: RHEUMATOID ARTHRITIS
     Dosage: (FIRST INFUSION ON 17-MAY-2006, SECOND INFUSION AFTER 15 DAYS AND LAST INFUSION ON 30-JUN-2006).
     Route: 042
  2. DELTACORTEN [Concomitant]
     Indication: RHEUMATOID ARTHRITIS
     Route: 048
  3. DIDROGYL [Concomitant]
     Indication: OSTEOPOROSIS
     Route: 048
  4. FOSAMAX [Concomitant]
     Indication: OSTEOPOROSIS
     Route: 048
  5. NORVASC [Concomitant]
     Indication: HYPERTENSION
     Route: 048
  6. LASIX [Concomitant]
     Indication: MYOCARDIAL ISCHAEMIA
     Route: 065
  7. METHOTREXATE [Concomitant]
     Route: 065
  8. OMEPRAZOLE [Concomitant]
     Indication: GASTRITIS
     Route: 065
  9. SUGUAN [Concomitant]
     Indication: DIABETES MELLITUS NON-INSULIN-DEPENDENT
     Route: 065

REACTIONS (1)
  - ACUTE MYOCARDIAL INFARCTION [None]
